FAERS Safety Report 7223010-8 (Version None)
Quarter: 2011Q1

REPORT INFORMATION
  Report Type: 
  Country: None (occurrence: None)
  Receive Date: 20110112
  Receipt Date: 20110107
  Transmission Date: 20110831
  Serious: Yes (Death)
  Sender: FDA-Public Use
  Company Number: JP-ABBOTT-10P-087-0692417-00

PATIENT
  Sex: Female

DRUGS (10)
  1. MESALAZINE [Concomitant]
     Indication: CROHN'S DISEASE
  2. ANTIBIOTICS-RESISTANT LACTIC ACID BACTERIAE [Concomitant]
     Indication: CROHN'S DISEASE
  3. HUMIRA [Suspect]
     Indication: CROHN'S DISEASE
  4. PREDNISOLONE SODIUM SUCCINATE FOR INJECTION [Concomitant]
     Indication: CROHN'S DISEASE
     Route: 042
     Dates: start: 20101116
  5. HUMIRA [Suspect]
     Indication: MUCOUS MEMBRANE DISORDER
  6. CHEMOTHERAPY WITH DRUGS INCLUDING CYTARABINE [Concomitant]
     Indication: LEUKAEMIA
  7. HUMIRA [Suspect]
     Indication: MELAENA
  8. TIQUIZIUM BROMIDE [Concomitant]
     Indication: CROHN'S DISEASE
  9. HUMIRA [Suspect]
     Indication: CHEMOTHERAPY
     Route: 058
     Dates: start: 20101126, end: 20101126
  10. PREDNISOLONE [Concomitant]
     Indication: PRODUCT USED FOR UNKNOWN INDICATION

REACTIONS (2)
  - LEUKAEMIA [None]
  - SHOCK HAEMORRHAGIC [None]
